FAERS Safety Report 5296487-5 (Version None)
Quarter: 2007Q2

REPORT INFORMATION
  Report Type: 
  Country: None (occurrence: None)
  Receive Date: 20070413
  Receipt Date: 20070412
  Transmission Date: 20071010
  Serious: Yes (Hospitalization)
  Sender: FDA-Public Use
  Company Number: IT-BRISTOL-MYERS SQUIBB COMPANY-13667548

PATIENT
  Age: 55 Year
  Sex: Male

DRUGS (2)
  1. DASATINIB [Suspect]
     Route: 048
     Dates: start: 20070131
  2. VORICONAZOLE [Concomitant]
     Dates: start: 20061214

REACTIONS (2)
  - BRONCHOPNEUMONIA [None]
  - EPISTAXIS [None]
